FAERS Safety Report 4600838-1 (Version None)
Quarter: 2005Q1

REPORT INFORMATION
  Report Type: 
  Country: None (occurrence: None)
  Receive Date: 20050127
  Receipt Date: 20041101
  Transmission Date: 20050727
  Serious: No
  Sender: FDA-Public Use
  Company Number: USA041182777

PATIENT
  Age: 11 Year
  Sex: Male
  Weight: 41 kg

DRUGS (2)
  1. STRATTERA [Suspect]
     Indication: DISTURBANCE IN ATTENTION
     Dosage: 60 MG DAY
     Dates: start: 20040501
  2. ZYRTEC [Concomitant]

REACTIONS (5)
  - BLEPHAROSPASM [None]
  - DYSKINESIA [None]
  - PRESCRIBED OVERDOSE [None]
  - STRABISMUS [None]
  - TIC [None]
